FAERS Safety Report 8250922-9 (Version None)
Quarter: 2012Q2

REPORT INFORMATION
  Report Type: 
  Country: None (occurrence: None)
  Receive Date: 20120402
  Receipt Date: 20120326
  Transmission Date: 20120825
  Serious: Yes (Other)
  Sender: FDA-Public Use
  Company Number: US-ASTRAZENECA-2012SE20447

PATIENT
  Age: 74 Year
  Sex: Female

DRUGS (2)
  1. SEROQUEL [Suspect]
     Indication: BRAIN INJURY
     Dosage: 25 MG IN MORNING AND 50 MG AT NIGHT
     Route: 048
  2. SEROQUEL [Suspect]
     Indication: SLEEP DISORDER
     Dosage: 25 MG IN MORNING AND 50 MG AT NIGHT
     Route: 048

REACTIONS (2)
  - OFF LABEL USE [None]
  - CARDIAC FAILURE [None]
